FAERS Safety Report 9531525 (Version 1)
Quarter: 2013Q3

REPORT INFORMATION
  Report Type: Spontaneous
  Country: US (occurrence: US)
  Receive Date: 20130918
  Receipt Date: 20130918
  Transmission Date: 20140515
  Serious: Yes (Hospitalization)
  Sender: FDA-Public Use
  Company Number: US-PFIZER INC-2013265542

PATIENT
  Age: 78 Year
  Sex: Male
  Weight: 92.52 kg

DRUGS (6)
  1. LIPITOR [Suspect]
     Indication: BLOOD CHOLESTEROL INCREASED
     Dosage: UNK
     Dates: start: 2000, end: 20120221
  2. POTASSIUM CHLORIDE [Concomitant]
     Dosage: 20 MEQ, UNK
  3. GLUCOVANCE [Concomitant]
     Indication: DIABETES MELLITUS
     Dosage: UNK
  4. INSULIN [Concomitant]
     Indication: DIABETES MELLITUS
     Dosage: UNK
  5. LEVEMIR [Concomitant]
     Indication: DIABETES MELLITUS
     Dosage: 30 IU, DAILY
     Route: 058
  6. LOSARTAN POTASSIUM [Concomitant]
     Dosage: UNK

REACTIONS (2)
  - Intestinal obstruction [Unknown]
  - Muscle spasms [Unknown]
